FAERS Safety Report 26069144 (Version 1)
Quarter: 2025Q4

REPORT INFORMATION
  Report Type: Spontaneous
  Country: US (occurrence: None)
  Receive Date: 20251119
  Receipt Date: 20251119
  Transmission Date: 20260118
  Serious: Yes (Hospitalization)
  Sender: FDA-CTU
  Company Number: None

PATIENT
  Age: 72 Year
  Sex: Male

DRUGS (8)
  1. LOKELMA [Suspect]
     Active Substance: SODIUM ZIRCONIUM CYCLOSILICATE
     Indication: Hyperkalaemia
     Dosage: 10 G GRAM(S) THREE TIMES PER WEEK ORAL
     Route: 048
     Dates: start: 20250516
  2. DULOXETINE DR 30MG GAPSULES [Concomitant]
  3. MAGNESIUM 400MG CAPSULES [Concomitant]
  4. FLOMAX 0.4MG CAPSULES [Concomitant]
  5. LEXAPRO 10MG TABLETS [Concomitant]
  6. TACROLIMUS [Concomitant]
     Active Substance: TACROLIMUS
  7. MYCOPHENOLATE MOFETIL [Concomitant]
     Active Substance: MYCOPHENOLATE MOFETIL
  8. SODIUM BICARBONATE 10GR(650MG) TABS [Concomitant]

REACTIONS (1)
  - Hospitalisation [None]

NARRATIVE: CASE EVENT DATE: 20251006
